FAERS Safety Report 5165649-X (Version None)
Quarter: 2006Q4

REPORT INFORMATION
  Report Type: 
  Country: None (occurrence: None)
  Receive Date: 20061206
  Receipt Date: 20061124
  Transmission Date: 20070319
  Serious: Yes (Other)
  Sender: FDA-Public Use
  Company Number: US-ELI_LILLY_AND_COMPANY-US200611004677

PATIENT
  Age: 63 Year
  Sex: Female

DRUGS (2)
  1. FORTEO [Suspect]
     Dosage: UNK, UNK
     Dates: start: 20061123, end: 20061123
  2. ACTONEL                                 /USA/ [Concomitant]

REACTIONS (2)
  - ARTERIOSPASM CORONARY [None]
  - MYOCARDIAL INFARCTION [None]
